FAERS Safety Report 4356588-2 (Version None)
Quarter: 2004Q2

REPORT INFORMATION
  Report Type: 
  Country: None (occurrence: None)
  Receive Date: 20040507
  Receipt Date: 20040430
  Transmission Date: 20050107
  Serious: Yes (Hospitalization)
  Sender: FDA-Public Use
  Company Number: STA-AE-04-MTX-180

PATIENT
  Age: 81 Year
  Sex: Female

DRUGS (2)
  1. METHOTREXATE [Suspect]
  2. CORTISONE (CORTISONE) [Concomitant]

REACTIONS (2)
  - APATHY [None]
  - DEMENTIA [None]
